FAERS Safety Report 8869182 (Version 1)
Quarter: 2012Q4

REPORT INFORMATION
  Report Type: 
  Country: US (occurrence: US)
  Receive Date: 20121023
  Receipt Date: 20121023
  Transmission Date: 20130627
  Serious: No
  Sender: FDA-Public Use
  Company Number: US-AMGEN-USASP2012053993

PATIENT
  Age: 65 Year
  Sex: Female

DRUGS (16)
  1. ENBREL [Suspect]
     Indication: PRODUCT USED FOR UNKNOWN INDICATION
     Dosage: 50 mg, qwk
     Route: 058
  2. FLEXERIL                           /00428402/ [Concomitant]
     Dosage: 10 mg, UNK
  3. TRENTAL [Concomitant]
     Dosage: 400 mg, UNK
  4. METHOTREXATE [Concomitant]
     Dosage: 2.5 mg, UNK
  5. ULTRAM ER [Concomitant]
     Dosage: 200 mg, UNK
  6. NASACORT AQ [Concomitant]
     Dosage: 55 UNK, UNK
  7. LISINOPRIL [Concomitant]
     Dosage: 40 mg, UNK
  8. ISOSORBID MONONITRAT [Concomitant]
     Dosage: 120 mg, UNK
  9. TOPROL [Concomitant]
     Dosage: 200 mg, UNK
  10. SULINDAC [Concomitant]
     Dosage: 200 mg, UNK
  11. CALCIUM 500+D [Concomitant]
  12. VITAMIN D [Concomitant]
     Dosage: 400 unit, UNK
  13. FISH OIL [Concomitant]
  14. FOLIC ACID [Concomitant]
  15. NITROLINGUAL-PUMPSPRAY [Concomitant]
  16. ASPIRIN [Concomitant]
     Dosage: 81 mg, UNK

REACTIONS (1)
  - Injection site pain [Unknown]
